FAERS Safety Report 10166329 (Version 1)
Quarter: 2014Q2

REPORT INFORMATION
  Report Type: Report from Study
  Country: IT (occurrence: IT)
  Receive Date: 20140512
  Receipt Date: 20140512
  Transmission Date: 20141212
  Serious: Yes (Hospitalization)
  Sender: FDA-Public Use
  Company Number: IT-ROCHE-1387511

PATIENT
  Age: 71 Year
  Sex: Male
  Weight: 78 kg

DRUGS (3)
  1. BEVACIZUMAB [Suspect]
     Indication: SMALL CELL LUNG CANCER
     Route: 042
     Dates: start: 20140310, end: 20140310
  2. CISPLATIN [Suspect]
     Indication: SMALL CELL LUNG CANCER
     Route: 042
     Dates: start: 20140310, end: 20140312
  3. ETOPOSIDE [Suspect]
     Indication: SMALL CELL LUNG CANCER
     Route: 042
     Dates: start: 20140310, end: 20140312

REACTIONS (1)
  - Pneumothorax [Not Recovered/Not Resolved]
